FAERS Safety Report 7652985-8 (Version None)
Quarter: 2011Q3

REPORT INFORMATION
  Report Type: 
  Country: None (occurrence: None)
  Receive Date: 20110803
  Receipt Date: 20110801
  Transmission Date: 20111222
  Serious: Yes (Other)
  Sender: FDA-Public Use
  Company Number: DE-PFIZER INC-2011175709

PATIENT
  Age: 35 Year
  Sex: Female

DRUGS (4)
  1. PANTOPRAZOLE [Suspect]
     Indication: HELICOBACTER INFECTION
     Dosage: 40 MG, 2X/DAY
     Dates: start: 20110622, end: 20110628
  2. CLARITHROMYCIN [Suspect]
     Indication: HELICOBACTER INFECTION
     Dosage: 500 MG, 2X/DAY
     Dates: start: 20110622, end: 20110628
  3. METOPROLOL SUCCINATE [Concomitant]
  4. AMOXICILLIN [Suspect]
     Indication: HELICOBACTER INFECTION
     Dosage: 1000 MG, 2X/DAY
     Dates: start: 20110622, end: 20110628

REACTIONS (3)
  - HEAT STROKE [None]
  - DIARRHOEA [None]
  - HEADACHE [None]
